FAERS Safety Report 5305232-6 (Version None)
Quarter: 2007Q2

REPORT INFORMATION
  Report Type: 
  Country: None (occurrence: None)
  Receive Date: 20070424
  Receipt Date: 20070410
  Transmission Date: 20071010
  Serious: Yes (Death, Hospitalization, Other)
  Sender: FDA-Public Use
  Company Number: FR-RB-005217-07

PATIENT
  Age: 83 Year
  Sex: Male

DRUGS (6)
  1. TEMGESIC [Suspect]
     Route: 048
  2. KARDEGIC [Suspect]
     Route: 048
     Dates: end: 20060608
  3. OMEPRAZOLE [Suspect]
     Indication: DRUG USE FOR UNKNOWN INDICATION
     Route: 048
  4. MICARDIS [Suspect]
     Indication: ESSENTIAL HYPERTENSION
     Route: 048
     Dates: end: 20060608
  5. NITRODERM [Suspect]
     Route: 061
     Dates: end: 20060618
  6. HEMIGOXINE NATIVELLE [Suspect]
     Route: 048
     Dates: end: 20060608

REACTIONS (1)
  - HYPERTHYROIDISM [None]
